FAERS Safety Report 5320602-8 (Version None)
Quarter: 2007Q2

REPORT INFORMATION
  Report Type: 
  Country: None (occurrence: None)
  Receive Date: 20070509
  Receipt Date: 20070427
  Transmission Date: 20071010
  Serious: Yes (Hospitalization, Disabling)
  Sender: FDA-Public Use
  Company Number: US-PFIZER INC-2005153559

PATIENT
  Sex: Female
  Weight: 52.6 kg

DRUGS (14)
  1. SUTENT [Suspect]
     Indication: BREAST CANCER METASTATIC
     Route: 048
  2. SYNTHROID [Concomitant]
     Route: 048
  3. DURAGESIC-100 [Concomitant]
  4. ZOFRAN [Concomitant]
     Route: 042
  5. COLACE [Concomitant]
     Route: 048
  6. ESGIC [Concomitant]
     Route: 048
  7. KAY CIEL DURA-TABS [Concomitant]
     Route: 042
  8. MEGACE [Concomitant]
     Route: 048
  9. LEVAQUIN [Concomitant]
     Route: 042
  10. LASIX [Concomitant]
     Route: 042
  11. CYTOMEL [Concomitant]
     Route: 048
     Dates: start: 20051019, end: 20051118
  12. PREVACID [Concomitant]
     Route: 048
     Dates: start: 20050620, end: 20051118
  13. MAXIPIME [Concomitant]
     Route: 048
  14. ACETAMINOPHEN W/ CODEINE [Concomitant]
     Indication: PAIN
     Route: 048
     Dates: start: 20050906, end: 20051118

REACTIONS (9)
  - ABDOMINAL PAIN [None]
  - ASTHENIA [None]
  - DEHYDRATION [None]
  - GENERALISED OEDEMA [None]
  - HYPOALBUMINAEMIA [None]
  - NAUSEA [None]
  - ORAL INTAKE REDUCED [None]
  - RENAL FAILURE [None]
  - VOMITING [None]
